FAERS Safety Report 9633539 (Version 1)
Quarter: 2013Q4

REPORT INFORMATION
  Report Type: Spontaneous
  Country: US (occurrence: US)
  Receive Date: 20131021
  Receipt Date: 20131021
  Transmission Date: 20140711
  Serious: No
  Sender: FDA-Public Use
  Company Number: US-BAUSCH-BL-2012-002084

PATIENT
  Sex: Female

DRUGS (1)
  1. BEPREVE (BEPOTASTINE BESILATE OPHTHALMIC SOLUTION 1.5%) [Suspect]
     Indication: EYE ALLERGY
     Dosage: GTT; OPTHALMIC
     Route: 047
     Dates: start: 201107, end: 201112

REACTIONS (2)
  - Vision blurred [Unknown]
  - Emotional distress [Unknown]
